FAERS Safety Report 7411405-9 (Version None)
Quarter: 2011Q2

REPORT INFORMATION
  Report Type: 
  Country: None (occurrence: None)
  Receive Date: 20110413
  Receipt Date: 20100728
  Transmission Date: 20111010
  Serious: Yes (Other)
  Sender: FDA-Public Use
  Company Number: US-BRISTOL-MYERS SQUIBB COMPANY-15203862

PATIENT
  Age: 72 Year
  Sex: Male

DRUGS (4)
  1. GEMZAR [Concomitant]
  2. ERBITUX [Suspect]
     Indication: LUNG NEOPLASM MALIGNANT
     Dosage: INITIAL 752 MG LOADING DOSE.
     Dates: start: 20100720
  3. ACETAMINOPHEN [Concomitant]
     Indication: PREMEDICATION
     Route: 048
  4. BENADRYL [Concomitant]
     Indication: PREMEDICATION
     Route: 042

REACTIONS (1)
  - HYPERSENSITIVITY [None]
